FAERS Safety Report 4555484-5 (Version None)
Quarter: 2005Q1

REPORT INFORMATION
  Report Type: 
  Country: None (occurrence: None)
  Receive Date: 20050119
  Receipt Date: 20031209
  Transmission Date: 20050727
  Serious: Yes (Hospitalization)
  Sender: FDA-Public Use
  Company Number: US-BRISTOL-MYERS SQUIBB COMPANY-12453783

PATIENT
  Age: 55 Year
  Sex: Male
  Weight: 104 kg

DRUGS (5)
  1. CEPHALEXIN [Suspect]
     Route: 048
     Dates: start: 20031104, end: 20031104
  2. ATENOLOL [Concomitant]
  3. GEMFIBROZIL [Concomitant]
  4. LITHIUM CARBONATE [Concomitant]
  5. LORAZEPAM [Concomitant]

REACTIONS (2)
  - ANAPHYLACTIC REACTION [None]
  - MEDICATION ERROR [None]
